FAERS Safety Report 6241404-4 (Version None)
Quarter: 2009Q2

REPORT INFORMATION
  Report Type: 
  Country: None (occurrence: None)
  Receive Date: 20090623
  Receipt Date: 20090511
  Transmission Date: 20091009
  Serious: Yes (Other)
  Sender: FDA-Public Use
  Company Number: TW-ROCHE-636907

PATIENT
  Age: 50 Year
  Sex: Male

DRUGS (2)
  1. PEG-INTERFERON ALFA 2A (RO 25-8310) [Suspect]
     Route: 065
     Dates: start: 20011001
  2. RIBAVIRIN [Suspect]
     Route: 048
     Dates: start: 20011001

REACTIONS (1)
  - TUBERCULOSIS [None]
